FAERS Safety Report 7326697-4 (Version None)
Quarter: 2011Q1

REPORT INFORMATION
  Report Type: 
  Country: None (occurrence: None)
  Receive Date: 20110216
  Receipt Date: 20110208
  Transmission Date: 20110831
  Serious: Yes (Other)
  Sender: FDA-Public Use
  Company Number: 2010AM003484

PATIENT
  Age: 58 Year
  Sex: Male
  Weight: 77.0208 kg

DRUGS (2)
  1. SYMLIN [Suspect]
     Indication: TYPE 2 DIABETES MELLITUS
     Dosage: 120, 60  MCG, TID, SC
     Route: 058
     Dates: start: 20101101
  2. SYMLIN [Suspect]
     Indication: TYPE 2 DIABETES MELLITUS
     Dosage: 120, 60  MCG, TID, SC
     Route: 058
     Dates: start: 20100901, end: 20101101

REACTIONS (2)
  - OESOPHAGEAL STENOSIS [None]
  - OESOPHAGEAL DYSPLASIA [None]
